FAERS Safety Report 5378599-0 (Version None)
Quarter: 2007Q3

REPORT INFORMATION
  Report Type: 
  Country: None (occurrence: None)
  Receive Date: 20070702
  Receipt Date: 20070702
  Transmission Date: 20080115
  Serious: Yes (Other)
  Sender: FDA-Public Use
  Company Number: None

PATIENT
  Age: 58 Year
  Sex: Female
  Weight: 72.5755 kg

DRUGS (2)
  1. NATURAL WHITE SENSITIVE TOOTHPAS LORNAMEAD BRANDS, INC. [Suspect]
     Indication: DENTAL DISORDER PROPHYLAXIS
     Dosage: BRUSH TEETH 2/3 DAILY
     Route: 004
     Dates: start: 20070601, end: 20070629
  2. NATURAL WHITE SENSITIVE EXTREME WHITENING TOOTHPASTE [Concomitant]

REACTIONS (23)
  - ABDOMINAL PAIN UPPER [None]
  - AGEUSIA [None]
  - ANOSMIA [None]
  - COORDINATION ABNORMAL [None]
  - CRYING [None]
  - DENTAL CARIES [None]
  - DRY EYE [None]
  - DRY MOUTH [None]
  - DRY THROAT [None]
  - DYSPNOEA [None]
  - EAR PRURITUS [None]
  - FEELING ABNORMAL [None]
  - GINGIVAL PAIN [None]
  - HEADACHE [None]
  - MALAISE [None]
  - MENTAL DISORDER [None]
  - NAUSEA [None]
  - PAROSMIA [None]
  - PHARMACEUTICAL PRODUCT COMPLAINT [None]
  - POOR QUALITY DRUG ADMINISTERED [None]
  - SINUSITIS [None]
  - TOOTHACHE [None]
  - WEIGHT DECREASED [None]
